FAERS Safety Report 4358554-X (Version None)
Quarter: 2004Q2

REPORT INFORMATION
  Report Type: 
  Country: None (occurrence: None)
  Receive Date: 20040512
  Receipt Date: 20040430
  Transmission Date: 20050107
  Serious: Yes (Hospitalization)
  Sender: FDA-Public Use
  Company Number: 04P-083-0257539-00

PATIENT
  Age: 26 Year
  Sex: Female
  Weight: 68 kg

DRUGS (10)
  1. HUMIRA [Suspect]
     Indication: RHEUMATOID ARTHRITIS
     Dosage: 40 MG, 1 IN 2 WK, SUBCUTANEOUS
     Route: 058
     Dates: start: 20030712, end: 20040326
  2. PREDNISONE [Concomitant]
  3. METHOTREXATE [Concomitant]
  4. FOLIC ACID [Concomitant]
  5. ESOMEPRAZOLE [Concomitant]
  6. LEKOVIT CA [Concomitant]
  7. INDOMETHACIN [Concomitant]
  8. RIFAXIMIN [Concomitant]
  9. CIPROFLOXACIN [Concomitant]
  10. INFLIXIMAB [Concomitant]

REACTIONS (5)
  - DISSEMINATED INTRAVASCULAR COAGULATION [None]
  - HAEMOLYTIC ANAEMIA [None]
  - PYREXIA [None]
  - THROMBOCYTOPENIA [None]
  - VOMITING [None]
